FAERS Safety Report 16244945 (Version 1)
Quarter: 2019Q2

REPORT INFORMATION
  Report Type: Spontaneous
  Country: US (occurrence: US)
  Receive Date: 20190426
  Receipt Date: 20190426
  Transmission Date: 20190711
  Serious: No
  Sender: FDA-Public Use
  Company Number: US-UNITED THERAPEUTICS-UNT-2019-007468

PATIENT
  Age: 47 Year
  Sex: Male

DRUGS (3)
  1. REMODULIN [Suspect]
     Active Substance: TREPROSTINIL
     Indication: PULMONARY ARTERIAL HYPERTENSION
     Dosage: 0.0031 ?G/KG, CONTINUING
     Route: 058
     Dates: start: 20190416
  2. TYVASO [Suspect]
     Active Substance: TREPROSTINIL
     Indication: PULMONARY ARTERIAL HYPERTENSION
     Dosage: 36 ?G, QID
  3. TYVASO [Suspect]
     Active Substance: TREPROSTINIL
     Dosage: 36 ?G, ONCE
     Dates: start: 20190422

REACTIONS (3)
  - Nausea [Unknown]
  - Oedema peripheral [Unknown]
  - Migraine [Unknown]

NARRATIVE: CASE EVENT DATE: 20190422
